FAERS Safety Report 4359209-8 (Version None)
Quarter: 2004Q2

REPORT INFORMATION
  Report Type: 
  Country: None (occurrence: None)
  Receive Date: 20040512
  Receipt Date: 20040503
  Transmission Date: 20050107
  Serious: Yes (Disabling)
  Sender: FDA-Public Use
  Company Number: 230018M04FRA

PATIENT
  Age: 34 Year
  Sex: Male
  Weight: 82 kg

DRUGS (5)
  1. REBIF [Suspect]
     Indication: MULTIPLE SCLEROSIS
     Dosage: 44 MCG, 3 IN 1 WEEKS, SUBCUTANEOUS
     Route: 058
     Dates: start: 20030601, end: 20040201
  2. BACLOFEN [Concomitant]
  3. SILDENAFIL CITRATE [Concomitant]
  4. UROXATRAL [Concomitant]
  5. AMANTADINE HCL [Concomitant]

REACTIONS (6)
  - CONDITION AGGRAVATED [None]
  - DISEASE PROGRESSION [None]
  - MULTIPLE SCLEROSIS RELAPSE [None]
  - MUSCLE SPASTICITY [None]
  - OPTIC NEURITIS [None]
  - PARESIS [None]
